FAERS Safety Report 13439278 (Version 3)
Quarter: 2017Q3

REPORT INFORMATION
  Report Type: Spontaneous
  Country: US (occurrence: US)
  Receive Date: 20170413
  Receipt Date: 20170714
  Transmission Date: 20171127
  Serious: Yes (Hospitalization, Other)
  Sender: FDA-Public Use
  Company Number: US-PFIZER INC-2017158534

PATIENT
  Age: 50 Year
  Sex: Female
  Weight: 97 kg

DRUGS (4)
  1. LYRICA [Suspect]
     Active Substance: PREGABALIN
     Indication: MUSCLE SPASMS
  2. BACLOFEN. [Suspect]
     Active Substance: BACLOFEN
     Indication: MUSCULOSKELETAL DISCOMFORT
     Dosage: 10 MG, 2X/DAY
     Dates: end: 201612
  3. BACLOFEN. [Suspect]
     Active Substance: BACLOFEN
     Dosage: A COUPLE
     Dates: start: 20170405, end: 20170405
  4. LYRICA [Suspect]
     Active Substance: PREGABALIN
     Indication: FIBROMYALGIA
     Dosage: 150MG OR MAYBE 100MG 2X/DAY
     Dates: start: 20160416, end: 20161203

REACTIONS (10)
  - Myalgia [Recovering/Resolving]
  - Emotional disorder [Recovering/Resolving]
  - Neuropathy peripheral [Recovering/Resolving]
  - Crying [Recovering/Resolving]
  - Pain [Unknown]
  - Feeling abnormal [Recovering/Resolving]
  - Muscle spasms [Recovering/Resolving]
  - Back pain [Recovering/Resolving]
  - Pain in extremity [Recovering/Resolving]
  - Gait inability [Recovering/Resolving]

NARRATIVE: CASE EVENT DATE: 20161203
